FAERS Safety Report 21388245 (Version 1)
Quarter: 2022Q3

REPORT INFORMATION
  Report Type: Spontaneous
  Country: CA (occurrence: CA)
  Receive Date: 20220928
  Receipt Date: 20220928
  Transmission Date: 20221027
  Serious: Yes (Hospitalization)
  Sender: FDA-Public Use
  Company Number: CA-GILEAD-2022-0599409

PATIENT
  Age: 93 Year
  Sex: Female
  Weight: 59.41 kg

DRUGS (1)
  1. VEKLURY [Suspect]
     Active Substance: REMDESIVIR
     Indication: COVID-19
     Dosage: 200 MG, ONCE
     Route: 042

REACTIONS (5)
  - Chills [Recovered/Resolved]
  - Tachycardia [Recovered/Resolved]
  - Vomiting [Recovered/Resolved]
  - Hypersensitivity [Recovered/Resolved]
  - Nausea [Recovered/Resolved]
